FAERS Safety Report 9195853 (Version 2)
Quarter: 2013Q2

REPORT INFORMATION
  Report Type: Spontaneous
  Country: US (occurrence: None)
  Receive Date: 20130312
  Receipt Date: 20130528
  Transmission Date: 20140414
  Serious: Yes (Hospitalization, Disabling)
  Sender: FDA-Public Use
  Company Number: 2013034912

PATIENT
  Age: 52 Year
  Sex: 0
  Weight: 78.02 kg

DRUGS (13)
  1. ZEMAIRA (ALPHA-1 PROTEINASE INHIBITOR (HUMAN)) [Suspect]
     Indication: ALPHA-1 ANTI-TRYPSIN DEFICIENCY
     Dosage: (60 MG/KG,6.3 ML/MIN)
     Route: 042
  2. PRIMAXIN (CILASTATIN W/IMIPENEM) [Concomitant]
  3. REQUIP (ROPINIROLE HYDROCHLORIDE) [Concomitant]
  4. IPRATROPIUM/ALBUTEROL (SALBUTAMOL W/IPRATROPIUM) [Concomitant]
  5. ADVAIR (SERETIDE /01420901) [Concomitant]
  6. TOBRAMYCIN (TOMRAMYCIN) [Concomitant]
  7. DIPHENHYDRAMINE (DIPHENHYDRAMINE) [Concomitant]
  8. EPINEPHRINE (EPINEPHRINE) [Concomitant]
  9. HEPARIN (HEPARIN) [Concomitant]
  10. SODIUM CHLORIDE [Concomitant]
  11. LMX (LIDOCAINE) [Concomitant]
  12. AMBIEN (ZOLPIDEM TARTRATE) [Concomitant]
  13. CELEXA (CITALOPRAM HYDROBROMIDE) [Concomitant]

REACTIONS (1)
  - Pneumonia [None]
